FAERS Safety Report 10230559 (Version 1)
Quarter: 2014Q2

REPORT INFORMATION
  Report Type: Report from Study
  Country: US (occurrence: US)
  Receive Date: 20140611
  Receipt Date: 20140611
  Transmission Date: 20141212
  Serious: Yes (Other)
  Sender: FDA-Public Use
  Company Number: PHHY2012US131229

PATIENT
  Sex: Male

DRUGS (24)
  1. LUCENTIS [Suspect]
     Indication: RETINAL VEIN OCCLUSION
     Dosage: 0.5 MG, OS (LEFT EYE)
     Route: 031
     Dates: start: 20120827
  2. LUCENTIS [Suspect]
     Indication: RETINAL OEDEMA
     Dosage: UKN, OS (LEFT EYE)
     Route: 031
     Dates: start: 20121001
  3. LUCENTIS [Suspect]
     Dosage: UKN, OS (LEFT EYE)
     Route: 031
     Dates: start: 20121112
  4. LUCENTIS [Suspect]
     Dosage: 0.5 MG, OS (LEFT EYE)
     Route: 031
     Dates: start: 20121210
  5. LUCENTIS [Suspect]
     Dosage: 0.5 MG, OS (LEFT EYE)
     Route: 031
     Dates: start: 20130114
  6. LUCENTIS [Suspect]
     Dosage: 0.5 MG, UKN
     Route: 031
     Dates: start: 20130225
  7. LUCENTIS [Suspect]
     Dosage: 0.5 MG UKN
     Route: 031
     Dates: start: 20130408
  8. LUCENTIS [Suspect]
     Dosage: 0.5 MG, UKN
     Route: 031
     Dates: start: 20130506
  9. METFORMIN [Suspect]
     Dosage: 1000 MG, TABLET
  10. AVASTIN [Suspect]
     Dosage: UNK UKN, UNK
     Route: 031
  11. AVASTIN [Suspect]
     Dosage: UNK UKN, OS (LEFT EYE)
     Route: 031
     Dates: start: 20120723
  12. FISH OIL [Concomitant]
     Dosage: 1000 MG, UNK
  13. GABAPENTIN [Concomitant]
     Dosage: 100 MG, UNK
  14. GLIPIZIDE [Concomitant]
     Dosage: 10 MG, UNK
  15. HYDROCHLOROTHIAZIDE [Concomitant]
     Dosage: 50 MG, UNK
  16. LANTUS [Concomitant]
     Dosage: 100 U/ML, UNK
  17. LISINOPRIL [Concomitant]
     Dosage: 10 MG, UNK
  18. OMEPRAZOLE [Concomitant]
     Dosage: 10 MG,  DELAYED RELEASE (E.C)
  19. SALSALATE [Concomitant]
     Dosage: 500 MG, UNK
  20. SIMVASTATIN [Concomitant]
     Dosage: 1 MG, UNK
  21. TAMSULOSIN [Concomitant]
     Dosage: 0.4 MG,  EXT. RELAEASE 24 HR
  22. TRAMADOL [Concomitant]
     Dosage: 100 MG, EXTENDED RELEASE 27 HR
  23. ASPIRIN [Concomitant]
     Dosage: 81 MG, DELAYED RELEASE (EC)
  24. LIDOCAINE [Concomitant]
     Dosage: UNK WITH EPINEPHRINE (2%)
     Route: 057

REACTIONS (4)
  - Retinal oedema [Unknown]
  - Neck pain [Unknown]
  - Arthralgia [Unknown]
  - Cataract nuclear [Unknown]
